FAERS Safety Report 5529390-3 (Version None)
Quarter: 2007Q4

REPORT INFORMATION
  Report Type: 
  Country: None (occurrence: None)
  Receive Date: 20071129
  Receipt Date: 20071128
  Transmission Date: 20080405
  Serious: Yes (Hospitalization)
  Sender: FDA-Public Use
  Company Number: B0497411A

PATIENT
  Age: 77 Year
  Sex: Male

DRUGS (6)
  1. AMOXICILLIN [Suspect]
     Indication: LUNG INFECTION
     Dosage: 1G TWICE PER DAY
     Route: 048
     Dates: start: 20070611, end: 20070619
  2. PLAVIX [Suspect]
     Dosage: 75MG PER DAY
     Route: 048
     Dates: end: 20070621
  3. PRAXILENE [Suspect]
     Dosage: 1UNIT TWICE PER DAY
     Route: 048
     Dates: end: 20070621
  4. HEMIGOXINE NATIVELLE [Suspect]
     Dosage: 1UNIT PER DAY
     Route: 048
     Dates: start: 20070601, end: 20070630
  5. JOSACINE [Concomitant]
     Indication: LUNG INFECTION
     Dosage: 500MG TWICE PER DAY
     Route: 048
     Dates: start: 20070611, end: 20070619
  6. CREON [Concomitant]
     Indication: DRUG USE FOR UNKNOWN INDICATION
     Dosage: 1UNIT TWICE PER DAY
     Route: 048

REACTIONS (1)
  - PANCYTOPENIA [None]
